FAERS Safety Report 7699280-9 (Version None)
Quarter: 2011Q3

REPORT INFORMATION
  Report Type: 
  Country: None (occurrence: None)
  Receive Date: 20110818
  Receipt Date: 20110818
  Transmission Date: 20111222
  Serious: No
  Sender: FDA-Public Use
  Company Number: None

PATIENT
  Age: 37 Year
  Sex: Male

DRUGS (5)
  1. FISH OIL [Concomitant]
  2. LOVASTATIN [Concomitant]
  3. ATRIPLA [Suspect]
     Dates: start: 20070613, end: 20080119
  4. IRON SULFATETHIAMIN COMPOUND TAB [Concomitant]
  5. MULTI-VITAMIN [Concomitant]

REACTIONS (8)
  - HEPATIC NECROSIS [None]
  - ACUTE HEPATIC FAILURE [None]
  - NAUSEA [None]
  - HEPATOTOXICITY [None]
  - VOMITING [None]
  - LIVER INJURY [None]
  - CONFUSIONAL STATE [None]
  - ABDOMINAL PAIN [None]
